FAERS Safety Report 7012571-X (Version None)
Quarter: 2010Q3

REPORT INFORMATION
  Report Type: 
  Country: None (occurrence: None)
  Receive Date: 20100924
  Receipt Date: 20100920
  Transmission Date: 20110219
  Serious: Yes (Death)
  Sender: FDA-Public Use
  Company Number: PHHY2010GB62350

PATIENT

DRUGS (5)
  1. CYCLOSPORINE [Suspect]
     Indication: LUNG TRANSPLANT
  2. AZATHIOPRINE [Suspect]
     Indication: LUNG TRANSPLANT
  3. PREDNISOLONE [Suspect]
     Indication: LUNG TRANSPLANT
  4. METHYLPREDNISOLONE [Concomitant]
     Dosage: 2 MG/KG
  5. ANTI-THYMOCYTE GLOBULIN NOS [Concomitant]

REACTIONS (1)
  - BACTERIAL INFECTION [None]
